FAERS Safety Report 9419323 (Version 1)
Quarter: 2013Q3

REPORT INFORMATION
  Report Type: Spontaneous
  Country: FR (occurrence: FR)
  Receive Date: 20130725
  Receipt Date: 20130725
  Transmission Date: 20140515
  Serious: Yes (Other)
  Sender: FDA-Public Use
  Company Number: FR-009507513-1307FRA001860

PATIENT
  Age: 18 Year
  Sex: Female
  Weight: 76 kg

DRUGS (1)
  1. IMPLANON [Suspect]
     Dosage: UNK
     Route: 030
     Dates: start: 201108, end: 20130515

REACTIONS (10)
  - Peripheral nerve palsy [Not Recovered/Not Resolved]
  - Surgery [Not Recovered/Not Resolved]
  - General anaesthesia [Unknown]
  - Incorrect route of drug administration [Unknown]
  - Device deployment issue [Unknown]
  - Device kink [Unknown]
  - Device difficult to use [Unknown]
  - Device dislocation [Unknown]
  - Medical device complication [Unknown]
  - Paraesthesia [Not Recovered/Not Resolved]
